FAERS Safety Report 18010971 (Version 1)
Quarter: 2020Q3

REPORT INFORMATION
  Report Type: Spontaneous
  Country: NL (occurrence: NL)
  Receive Date: 20200710
  Receipt Date: 20200710
  Transmission Date: 20201103
  Serious: Yes (Death, Hospitalization, Other)
  Sender: FDA-Public Use
  Company Number: NVSC2020NL190239

PATIENT
  Age: 54 Year
  Sex: Male
  Weight: 73 kg

DRUGS (7)
  1. AZACITIDINE. [Concomitant]
     Active Substance: AZACITIDINE
     Indication: PRODUCT USED FOR UNKNOWN INDICATION
     Dosage: UNK
     Route: 065
     Dates: start: 20200120
  2. FLUCONAZOLE. [Concomitant]
     Active Substance: FLUCONAZOLE
     Indication: PRODUCT USED FOR UNKNOWN INDICATION
     Dosage: UNK
     Route: 065
     Dates: start: 20200120
  3. VORICONAZOLE. [Suspect]
     Active Substance: VORICONAZOLE
     Indication: PRODUCT USED FOR UNKNOWN INDICATION
     Dosage: UNK
     Route: 065
  4. VENETOCLAX. [Suspect]
     Active Substance: VENETOCLAX
     Indication: ACUTE MYELOID LEUKAEMIA
     Dosage: 200 MG, QD
     Route: 048
     Dates: start: 2020, end: 2020
  5. CYCLOSPORINE. [Concomitant]
     Active Substance: CYCLOSPORINE
     Indication: PRODUCT USED FOR UNKNOWN INDICATION
     Dosage: UNK
     Route: 065
  6. VENETOCLAX. [Suspect]
     Active Substance: VENETOCLAX
     Dosage: 10 MG (RAMP UP DOSING SCHEDULE 20MG ? 50MG ? 100MG  )
     Route: 048
     Dates: start: 20200121, end: 2020
  7. VENETOCLAX. [Suspect]
     Active Substance: VENETOCLAX
     Dosage: UNK
     Route: 048
     Dates: start: 2020, end: 2020

REACTIONS (9)
  - Coronavirus infection [Fatal]
  - Pneumonia [Unknown]
  - Pancytopenia [Not Recovered/Not Resolved]
  - Disseminated intravascular coagulation [Unknown]
  - Neuropathy peripheral [Unknown]
  - Acute respiratory failure [Unknown]
  - Skin infection [Unknown]
  - Oedema [Unknown]
  - Off label use [Unknown]

NARRATIVE: CASE EVENT DATE: 2020
